FAERS Safety Report 20089757 (Version 6)
Quarter: 2024Q3

REPORT INFORMATION
  Report Type: Report from Study
  Country: US (occurrence: US)
  Receive Date: 20211119
  Receipt Date: 20240926
  Transmission Date: 20241017
  Serious: Yes (Other)
  Sender: GLAXOSMITHKLINE
  Company Number: US-GLAXOSMITHKLINE-US2021AMR236180

PATIENT
  Age: 63 Year
  Sex: Female
  Weight: 63.03 kg

DRUGS (1)
  1. NIRAPARIB [Suspect]
     Active Substance: NIRAPARIB
     Indication: Ovarian cancer
     Dosage: 200 MG, QD
     Dates: start: 20211111, end: 20211209

REACTIONS (24)
  - Thrombocytopenia [Unknown]
  - Flushing [Recovered/Resolved]
  - Abdominal pain [Not Recovered/Not Resolved]
  - Abdominal distension [Not Recovered/Not Resolved]
  - Insomnia [Recovered/Resolved]
  - Energy increased [Not Recovered/Not Resolved]
  - Dyspepsia [Not Recovered/Not Resolved]
  - Palpitations [Unknown]
  - Dry mouth [Unknown]
  - Nausea [Not Recovered/Not Resolved]
  - Back pain [Not Recovered/Not Resolved]
  - Feeling abnormal [Not Recovered/Not Resolved]
  - Heart rate irregular [Unknown]
  - Blood pressure increased [Not Recovered/Not Resolved]
  - Pruritus [Not Recovered/Not Resolved]
  - Abdominal pain upper [Recovered/Resolved]
  - Contusion [Unknown]
  - Platelet count decreased [Recovered/Resolved]
  - Hepatic enzyme abnormal [Recovering/Resolving]
  - Carbohydrate antigen 125 increased [Not Recovered/Not Resolved]
  - COVID-19 [Unknown]
  - Asthenia [Unknown]
  - Dizziness [Unknown]
  - Muscle spasms [Unknown]

NARRATIVE: CASE EVENT DATE: 20211101
